FAERS Safety Report 21206737 (Version 2)
Quarter: 2023Q2

REPORT INFORMATION
  Report Type: Report from Study
  Country: US (occurrence: US)
  Receive Date: 20220812
  Receipt Date: 20230528
  Transmission Date: 20230722
  Serious: Yes (Hospitalization)
  Sender: FDA-Public Use
  Company Number: US-ARGENX-2022-ARGX-US000463

PATIENT
  Age: 77 Year
  Sex: Male
  Weight: 100.4 kg

DRUGS (1)
  1. VYVGART [Suspect]
     Active Substance: EFGARTIGIMOD ALFA-FCAB
     Indication: Myasthenia gravis
     Dosage: UNK
     Route: 042
     Dates: start: 20220309

REACTIONS (2)
  - Herpes zoster [Unknown]
  - Procedural headache [Unknown]

NARRATIVE: CASE EVENT DATE: 20220309
